FAERS Safety Report 13625372 (Version 3)
Quarter: 2017Q3

REPORT INFORMATION
  Report Type: Spontaneous
  Country: US (occurrence: US)
  Receive Date: 20170607
  Receipt Date: 20170727
  Transmission Date: 20171127
  Serious: Yes (Other)
  Sender: FDA-Public Use
  Company Number: US-TEVA-775152USA

PATIENT
  Age: 2 Year
  Sex: Male

DRUGS (1)
  1. AMOXICILLIN. [Suspect]
     Active Substance: AMOXICILLIN
     Indication: EAR INFECTION
     Route: 065
     Dates: start: 201704, end: 2017

REACTIONS (13)
  - Joint swelling [Recovered/Resolved]
  - Dysstasia [Unknown]
  - Hypersensitivity [Recovered/Resolved]
  - Pain [Unknown]
  - Urticaria [Recovered/Resolved]
  - Serum sickness-like reaction [Recovered/Resolved]
  - Gait inability [Not Recovered/Not Resolved]
  - Gait disturbance [Not Recovered/Not Resolved]
  - Weight bearing difficulty [Unknown]
  - Arthralgia [Not Recovered/Not Resolved]
  - Crying [Unknown]
  - Peripheral swelling [Recovered/Resolved]
  - Motor dysfunction [Unknown]

NARRATIVE: CASE EVENT DATE: 2017
